FAERS Safety Report 6387265-4 (Version None)
Quarter: 2009Q3

REPORT INFORMATION
  Report Type: 
  Country: None (occurrence: None)
  Receive Date: 20090928
  Receipt Date: 20090914
  Transmission Date: 20100115
  Serious: Yes (Death)
  Sender: FDA-Public Use
  Company Number: OPIR20090060

PATIENT
  Age: 52 Year
  Sex: Female

DRUGS (1)
  1. OPANA [Suspect]
     Indication: DRUG USE FOR UNKNOWN INDICATION

REACTIONS (4)
  - CARBON MONOXIDE POISONING [None]
  - DRUG TOXICITY [None]
  - HEAD INJURY [None]
  - HOMICIDE [None]
